FAERS Safety Report 7999526-3 (Version None)
Quarter: 2011Q4

REPORT INFORMATION
  Report Type: 
  Country: None (occurrence: None)
  Receive Date: 20111221
  Receipt Date: 20111214
  Transmission Date: 20120403
  Serious: No
  Sender: FDA-Public Use
  Company Number: US-PFIZER INC-2011305721

PATIENT
  Sex: Female
  Weight: 56.689 kg

DRUGS (3)
  1. PROTONIX [Suspect]
     Indication: DYSPEPSIA
     Dosage: 40 MG, DAILY
     Dates: start: 20111203
  2. DICYCLOMINE [Concomitant]
     Indication: DIVERTICULITIS
     Dosage: UNK
  3. ASCORBIC ACID [Suspect]
     Indication: BLOOD COUNT ABNORMAL
     Dosage: UNK
     Dates: end: 20111212

REACTIONS (1)
  - CONSTIPATION [None]
